FAERS Safety Report 7449100-2 (Version None)
Quarter: 2011Q2

REPORT INFORMATION
  Report Type: 
  Country: None (occurrence: None)
  Receive Date: 20110502
  Receipt Date: 20101213
  Transmission Date: 20111010
  Serious: Yes (Hospitalization, Other)
  Sender: FDA-Public Use
  Company Number: US-BAYER-201016604NA

PATIENT
  Age: 37 Year
  Sex: Female
  Weight: 70.455 kg

DRUGS (5)
  1. YASMIN [Suspect]
     Indication: ORAL CONTRACEPTION
     Dosage: ^SHE WAS NOT ON ANY HORMONAL THERAPY...BUT HAD NOT BEEN ON FOR A COUPLE OF MONTHS^
     Route: 048
     Dates: start: 20050113, end: 20080301
  2. IBUPROFEN [Concomitant]
     Dates: start: 20040101
  3. YASMIN [Suspect]
     Route: 048
     Dates: start: 20090901, end: 20091101
  4. SODIUM CHLORIDE [Concomitant]
     Indication: CEREBRAL VENOUS THROMBOSIS
     Route: 042
  5. YASMIN [Suspect]
     Indication: ACNE
     Route: 048
     Dates: start: 20090701, end: 20090901

REACTIONS (8)
  - NAUSEA [None]
  - GENERALISED ANXIETY DISORDER [None]
  - CEREBRAL VENOUS THROMBOSIS [None]
  - VISION BLURRED [None]
  - VOMITING [None]
  - PREGNANCY ON ORAL CONTRACEPTIVE [None]
  - HEADACHE [None]
  - DIZZINESS [None]
